FAERS Safety Report 5400025-3 (Version None)
Quarter: 2007Q3

REPORT INFORMATION
  Report Type: 
  Country: None (occurrence: None)
  Receive Date: 20070726
  Receipt Date: 20070726
  Transmission Date: 20080115
  Serious: Yes (Hospitalization)
  Sender: FDA-Public Use
  Company Number: None

PATIENT
  Age: 71 Year
  Sex: Male
  Weight: 99.7913 kg

DRUGS (7)
  1. AVASTIN [Suspect]
     Indication: METASTATIC GASTRIC CANCER
     Dosage: 7.5 EVERY 21 DAYS IV DRIP
     Route: 041
     Dates: start: 20061221, end: 20070705
  2. OXALIPLATIN [Suspect]
     Indication: METASTATIC GASTRIC CANCER
     Dosage: 75/70 EVERY 21 DAYS IV DRIP
     Route: 041
     Dates: start: 20061221, end: 20070705
  3. LIPITOR [Concomitant]
  4. LISINOPRIL [Concomitant]
  5. DEXAMETHASONE 0.5MG TAB [Concomitant]
  6. VICODIN [Concomitant]
  7. TAXOTERE [Suspect]

REACTIONS (2)
  - DEHYDRATION [None]
  - HYPOTENSION [None]
